FAERS Safety Report 8196818-2 (Version None)
Quarter: 2012Q1

REPORT INFORMATION
  Report Type: 
  Country: None (occurrence: None)
  Receive Date: 20120309
  Receipt Date: 20120306
  Transmission Date: 20120608
  Serious: Yes (Hospitalization, Other)
  Sender: FDA-Public Use
  Company Number: US-PFIZER INC-2012024266

PATIENT
  Sex: Female
  Weight: 61.224 kg

DRUGS (10)
  1. BENADRYL [Suspect]
     Dosage: UNK
  2. TRAMADOL HCL [Interacting]
     Indication: PAIN
     Dosage: UNK, 3X/DAY
  3. AMITRIPTYLINE [Concomitant]
     Indication: DEPRESSION
  4. LYRICA [Suspect]
     Indication: FIBROMYALGIA
     Dosage: 150 MG, 2X/DAY
     Route: 048
  5. AMITRIPTYLINE [Concomitant]
     Indication: PAIN
     Dosage: 100 MG, DAILY AT BEDTIME
  6. CELEBREX [Suspect]
     Indication: ARTHRITIS
     Dosage: 100 MG, AS NEEDED (UP TO THREE TIMES A DAY IF NEEDED)
     Route: 048
  7. CELEBREX [Suspect]
     Dosage: 100 MG, 3X/DAY
     Route: 048
  8. FLUOXETINE [Interacting]
     Indication: DEPRESSION
     Dosage: 40 MG, DAILY
  9. XANAX [Concomitant]
     Indication: ANXIETY
     Dosage: 0.5 MG, AS NEEDED (2-3 TIMES A DAY IF NEEDED)
     Route: 048
  10. SIMVASTATIN [Concomitant]
     Indication: BLOOD CHOLESTEROL INCREASED
     Dosage: 20 MG, DAILY
     Dates: start: 20110601

REACTIONS (3)
  - CONVULSION [None]
  - DRUG INTERACTION [None]
  - ULCER HAEMORRHAGE [None]
